FAERS Safety Report 9311072 (Version 1)
Quarter: 2013Q2

REPORT INFORMATION
  Report Type: Spontaneous
  Country: US (occurrence: US)
  Receive Date: 20130528
  Receipt Date: 20130528
  Transmission Date: 20140414
  Serious: Yes (Death, Hospitalization)
  Sender: FDA-Public Use
  Company Number: US-PFIZER INC-2013161054

PATIENT
  Age: 83 Year
  Sex: Female
  Weight: 63.95 kg

DRUGS (1)
  1. SUTENT [Suspect]
     Indication: RENAL CANCER
     Dosage: 50 MG, 1X/DAY
     Dates: start: 201304, end: 20130513

REACTIONS (4)
  - Disease progression [Fatal]
  - Renal cancer [Fatal]
  - Asthenia [Unknown]
  - Nausea [Unknown]
